FAERS Safety Report 23320763 (Version 6)
Quarter: 2024Q2

REPORT INFORMATION
  Report Type: Spontaneous
  Country: US (occurrence: US)
  Receive Date: 20231220
  Receipt Date: 20240501
  Transmission Date: 20240716
  Serious: No
  Sender: FDA-Public Use
  Company Number: US-PFIZER INC-202300440112

PATIENT
  Age: 17 Year
  Sex: Male
  Weight: 49.9 kg

DRUGS (2)
  1. GENOTROPIN [Suspect]
     Active Substance: SOMATROPIN
     Indication: Short stature
     Dosage: 1.5 MG, DAILY
  2. GENOTROPIN [Suspect]
     Active Substance: SOMATROPIN
     Dosage: 1.7 ONCE A NIGHT
     Dates: start: 202302

REACTIONS (5)
  - Drug dose omission by device [Unknown]
  - Expired device used [Unknown]
  - Device use error [Unknown]
  - Device issue [Unknown]
  - Device breakage [Unknown]
